FAERS Safety Report 4337789-6 (Version None)
Quarter: 2004Q2

REPORT INFORMATION
  Report Type: 
  Country: None (occurrence: None)
  Receive Date: 20040408
  Receipt Date: 20040324
  Transmission Date: 20050107
  Serious: Yes (Disabling)
  Sender: FDA-Public Use
  Company Number: S04-AUS-01448-01

PATIENT
  Age: 36 Year
  Sex: Female

DRUGS (2)
  1. LEXAPRO [Suspect]
     Dosage: 10 MG QD PO
     Route: 048
     Dates: start: 20031201, end: 20040101
  2. DIAZEPAM [Concomitant]

REACTIONS (1)
  - HALLUCINATION, VISUAL [None]
